FAERS Safety Report 5715800-5 (Version None)
Quarter: 2008Q2

REPORT INFORMATION
  Report Type: 
  Country: None (occurrence: None)
  Receive Date: 20080424
  Receipt Date: 20080417
  Transmission Date: 20081010
  Serious: Yes (Other)
  Sender: FDA-Public Use
  Company Number: GB-BRISTOL-MYERS SQUIBB COMPANY-14161459

PATIENT

DRUGS (2)
  1. EFAVIRENZ [Suspect]
  2. TRUVADA [Suspect]

REACTIONS (2)
  - HYPERPARATHYROIDISM SECONDARY [None]
  - VITAMIN D DEFICIENCY [None]
